FAERS Safety Report 17065264 (Version 1)
Quarter: 2019Q4

REPORT INFORMATION
  Report Type: Spontaneous
  Country: US (occurrence: US)
  Receive Date: 20191122
  Receipt Date: 20191122
  Transmission Date: 20200122
  Serious: Yes (Life-Threatening, Hospitalization)
  Sender: FDA-Public Use
  Company Number: None

PATIENT
  Age: 53 Year
  Sex: Male
  Weight: 94 kg

DRUGS (10)
  1. IBUPROFEN 600MG: 1 TAB Q6H PRN PAIN [Concomitant]
  2. ASPIRIN 81MG: 1 TAB QAM [Concomitant]
  3. NORTRIPTYLINE CAPSULE [Suspect]
     Active Substance: NORTRIPTYLINE HYDROCHLORIDE
     Indication: AFFECTIVE DISORDER
     Dosage: ?          OTHER FREQUENCY:1 CAP AM/2 CAPS PM;?
     Route: 048
  4. DOXYLAMINE 100MG: 1 TAB PO QD [Concomitant]
  5. BUPROPION XL TABLET [Suspect]
     Active Substance: BUPROPION HYDROCHLORIDE
     Indication: AFFECTIVE DISORDER
     Route: 048
  6. ACETAMINOPHEN 325MG: 2 TABS Q4H [Concomitant]
  7. SILDENAFIL 100MG: 1 TAB DAILY [Concomitant]
  8. CARISOPRODOL 350MG: 1 TAB QID [Concomitant]
  9. GABAPENTIN 300MG: 1 CAP TID [Concomitant]
  10. DULOXETINE EC 40MG: 1 CAP BID [Concomitant]

REACTIONS (1)
  - Brugada syndrome [None]

NARRATIVE: CASE EVENT DATE: 20191114
